FAERS Safety Report 10023722 (Version 3)
Quarter: 2014Q1

REPORT INFORMATION
  Report Type: Report from Study
  Country: CA (occurrence: CA)
  Receive Date: 20140320
  Receipt Date: 20140328
  Transmission Date: 20141002
  Serious: Yes (Hospitalization, Other)
  Sender: FDA-Public Use
  Company Number: CA-ROCHE-1364253

PATIENT
  Age: 75 Year
  Sex: Female
  Weight: 60.3 kg

DRUGS (5)
  1. RITUXAN [Suspect]
     Indication: RHEUMATOID ARTHRITIS
     Dosage: LAST DOSE RECEIVED IN JUN-2013
     Route: 042
     Dates: start: 20120917
  2. RITUXAN [Suspect]
     Route: 042
     Dates: start: 20140325
  3. DIPHENHYDRAMINE HCL [Concomitant]
     Indication: PREMEDICATION
     Route: 048
     Dates: start: 20140325
  4. ACETAMINOPHEN [Concomitant]
     Indication: PREMEDICATION
     Route: 048
     Dates: start: 20140325
  5. METHYLPREDNISOLONE [Concomitant]
     Indication: PREMEDICATION
     Route: 042
     Dates: start: 20140325

REACTIONS (3)
  - Colon cancer stage II [Recovered/Resolved]
  - Thermal burn [Not Recovered/Not Resolved]
  - Hypertension [Unknown]
